FAERS Safety Report 9332378 (Version 1)
Quarter: 2013Q2

REPORT INFORMATION
  Report Type: Spontaneous
  Country: GR (occurrence: GR)
  Receive Date: 20130606
  Receipt Date: 20130606
  Transmission Date: 20140414
  Serious: Yes (Other)
  Sender: FDA-Public Use
  Company Number: PHHY2013GR056588

PATIENT
  Age: 65 Year
  Sex: Female

DRUGS (3)
  1. ONBREZ [Suspect]
     Indication: CHRONIC OBSTRUCTIVE PULMONARY DISEASE
  2. SPIRIVA [Concomitant]
  3. PROLIA [Concomitant]
     Indication: OSTEOPOROSIS

REACTIONS (2)
  - Dysphonia [Recovered/Resolved]
  - Bronchospasm [Recovered/Resolved]
